FAERS Safety Report 7970525-0 (Version None)
Quarter: 2011Q4

REPORT INFORMATION
  Report Type: 
  Country: None (occurrence: None)
  Receive Date: 20111212
  Receipt Date: 20111212
  Transmission Date: 20120403
  Serious: Yes (Hospitalization)
  Sender: FDA-Public Use
  Company Number: IT-SANOFI-AVENTIS-2011SA081008

PATIENT
  Age: 84 Year
  Sex: Male

DRUGS (10)
  1. LASITONE [Suspect]
     Route: 048
     Dates: start: 20100815, end: 20110814
  2. NIFEREX [Concomitant]
  3. AMLODIPINE BESYLATE [Suspect]
     Route: 048
     Dates: start: 20100815, end: 20110814
  4. COUMADIN [Concomitant]
  5. TRENTAL [Concomitant]
  6. LASIX [Suspect]
     Route: 048
     Dates: start: 20100815, end: 20110814
  7. PERINDOPRIL [Suspect]
     Route: 048
     Dates: start: 20100815, end: 20110814
  8. LANSOPRAZOLE [Concomitant]
  9. ATORVASTATIN CALCIUM [Concomitant]
  10. BISOPROLOL FUMARATE [Suspect]
     Route: 048
     Dates: start: 20100815, end: 20110814

REACTIONS (1)
  - SYNCOPE [None]
